FAERS Safety Report 15226909 (Version 1)
Quarter: 2018Q3

REPORT INFORMATION
  Report Type: Spontaneous
  Country: US (occurrence: US)
  Receive Date: 20180706
  Receipt Date: 20180706
  Transmission Date: 20181010
  Serious: Yes (Death)
  Sender: FDA-Public Use
  Company Number: None

PATIENT
  Age: 59 Year
  Sex: Male
  Weight: 65.6 kg

DRUGS (1)
  1. INV?PEMBROLIZUMAB [Suspect]
     Active Substance: PEMBROLIZUMAB
     Indication: LUNG SQUAMOUS CELL CARCINOMA STAGE IV
     Dosage: ?          OTHER FREQUENCY:SINGLE DOSE ;?
     Route: 042
     Dates: start: 20180531, end: 20180531

REACTIONS (19)
  - Malignant neoplasm progression [None]
  - Colitis [None]
  - Gastrointestinal sounds abnormal [None]
  - Metabolic acidosis [None]
  - Dyspnoea [None]
  - Leukocytosis [None]
  - Lactic acidosis [None]
  - Pericardial effusion [None]
  - Atrial fibrillation [None]
  - Condition aggravated [None]
  - Abdominal distension [None]
  - Enteritis [None]
  - Generalised oedema [None]
  - Abdominal pain [None]
  - Diarrhoea [None]
  - Atelectasis [None]
  - Pleural effusion [None]
  - Hypotension [None]
  - Abdominal pain upper [None]

NARRATIVE: CASE EVENT DATE: 20180621
